FAERS Safety Report 16784989 (Version 2)
Quarter: 2021Q4

REPORT INFORMATION
  Report Type: Spontaneous
  Country: CN (occurrence: CN)
  Receive Date: 20190909
  Receipt Date: 20211130
  Transmission Date: 20220304
  Serious: Yes (Hospitalization, Other)
  Sender: FDA-Public Use
  Company Number: CN-GLAXOSMITHKLINE-CN2019APC159869

PATIENT
  Age: 69 Year
  Sex: Female

DRUGS (5)
  1. HEPSERA [Suspect]
     Active Substance: ADEFOVIR DIPIVOXIL
     Indication: Chronic hepatitis B
     Dosage: UNK, 4-5 YEARS
     Route: 048
     Dates: end: 2019
  2. HEPSERA [Suspect]
     Active Substance: ADEFOVIR DIPIVOXIL
     Dosage: UNK
     Route: 048
  3. VIREAD [Suspect]
     Active Substance: TENOFOVIR DISOPROXIL FUMARATE
     Indication: Chronic hepatitis B
     Dosage: UNK
     Route: 065
     Dates: start: 201901
  4. LAMIVUDINE [Suspect]
     Active Substance: LAMIVUDINE
     Indication: Chronic hepatitis B
     Dosage: UNK
     Route: 048
  5. ENTECAVIR [Suspect]
     Active Substance: ENTECAVIR
     Indication: Chronic hepatitis B
     Dosage: UNK
     Route: 065

REACTIONS (6)
  - Diabetes mellitus [Recovering/Resolving]
  - Abdominal pain upper [Recovered/Resolved]
  - Gastric ulcer [Recovered/Resolved]
  - Microalbuminuria [Unknown]
  - Proteinuria [Not Recovered/Not Resolved]
  - Drug resistance [Unknown]
